FAERS Safety Report 18144539 (Version 1)
Quarter: 2020Q3

REPORT INFORMATION
  Report Type: Report from Study
  Country: BR (occurrence: BR)
  Receive Date: 20200813
  Receipt Date: 20200813
  Transmission Date: 20201103
  Serious: Yes (Other)
  Sender: FDA-Public Use
  Company Number: NVSC2020BR223516

PATIENT
  Age: 75 Year
  Sex: Male

DRUGS (1)
  1. ENTRESTO [Suspect]
     Active Substance: SACUBITRIL\VALSARTAN
     Indication: PRODUCT USED FOR UNKNOWN INDICATION
     Dosage: 1 DF(97/203 MG], BID
     Route: 065
     Dates: start: 20180321, end: 20180421

REACTIONS (6)
  - Condition aggravated [Not Recovered/Not Resolved]
  - Syncope [Unknown]
  - Malaise [Unknown]
  - Hypotension [Unknown]
  - Drug intolerance [Recovered/Resolved]
  - Blood pressure decreased [Recovered/Resolved]

NARRATIVE: CASE EVENT DATE: 20180322
